FAERS Safety Report 10052992 (Version 1)
Quarter: 2014Q1

REPORT INFORMATION
  Report Type: Spontaneous
  Country: JP (occurrence: None)
  Receive Date: 20140331
  Receipt Date: 20140331
  Transmission Date: 20141002
  Serious: Yes (Other)
  Sender: FDA-Public Use
  Company Number: 2014JP00310

PATIENT
  Sex: 0

DRUGS (4)
  1. IRINOTECAN [Suspect]
     Indication: COLORECTAL CANCER METASTATIC
     Dosage: 90 MINUTE INFUSION OF 150 MG/MG, INFUSION
     Route: 042
  2. FOLINIC ACID [Suspect]
     Indication: COLORECTAL CANCER METASTATIC
     Dosage: A CONCURRENT 2 HOUR INTRAVENOUS INFUSION OF 200 MG/M2, INFUSION
  3. FLUOROURACIL [Suspect]
     Indication: COLORECTAL CANCER METASTATIC
     Dosage: A BOLUS INTRAVENOUS INFUSION OF 400 MG/M2, INFUSION
  4. BEVACIZUMAB [Suspect]
     Indication: COLORECTAL CANCER METASTATIC
     Dosage: INFUSION

REACTIONS (1)
  - Depressed level of consciousness [None]
